FAERS Safety Report 9940639 (Version 1)
Quarter: 2014Q1

REPORT INFORMATION
  Report Type: Spontaneous
  Country: US (occurrence: US)
  Receive Date: 20140303
  Receipt Date: 20140303
  Transmission Date: 20141002
  Serious: No
  Sender: FDA-Public Use
  Company Number: US-BAYER-2014-032107

PATIENT
  Age: 50 Year
  Sex: Female

DRUGS (1)
  1. ALEVE CAPLET [Suspect]
     Indication: BACK PAIN
     Dosage: 3 DF, ONCE
     Route: 048
     Dates: start: 20140226, end: 20140226

REACTIONS (2)
  - Inappropriate schedule of drug administration [None]
  - Abdominal discomfort [Not Recovered/Not Resolved]
